FAERS Safety Report 11294575 (Version 1)
Quarter: 2015Q2

REPORT INFORMATION
  Report Type: Spontaneous
  Country: US (occurrence: None)
  Receive Date: 20150623
  Receipt Date: 20150623
  Transmission Date: 20150821
  Serious: Yes (Other)
  Sender: FDA-Public Use
  Company Number: RB-70206-2014

PATIENT
  Age: 29 Year
  Sex: Female

DRUGS (1)
  1. MUCINEX DM [Suspect]
     Active Substance: DEXTROMETHORPHAN HYDROBROMIDE\GUAIFENESIN
     Indication: PRODUCT USED FOR UNKNOWN INDICATION
     Dosage: TOTAL, TOOK ONE DOSE
     Dates: start: 20141105

REACTIONS (5)
  - Dizziness [None]
  - Expired product administered [None]
  - Anxiety [None]
  - Dyspnoea [None]
  - Hallucination [None]

NARRATIVE: CASE EVENT DATE: 201411
